FAERS Safety Report 9845765 (Version 1)
Quarter: 2014Q1

REPORT INFORMATION
  Report Type: Spontaneous
  Country: US (occurrence: US)
  Receive Date: 20140127
  Receipt Date: 20140127
  Transmission Date: 20141002
  Serious: Yes (Hospitalization, Other)
  Sender: FDA-Public Use
  Company Number: US-BAXTER-2014BAX002846

PATIENT
  Sex: Female

DRUGS (6)
  1. DIANEAL LOW CALCIUM [Suspect]
     Indication: PERITONEAL DIALYSIS
     Route: 033
     Dates: start: 201107
  2. DIANEAL LOW CALCIUM [Suspect]
     Indication: PERITONEAL DIALYSIS
     Route: 033
     Dates: start: 201107
  3. EXTRANEAL [Suspect]
     Indication: PERITONEAL DIALYSIS
     Route: 033
     Dates: start: 201107
  4. DILAUDID [Suspect]
     Indication: FIBROMYALGIA
     Route: 048
     Dates: start: 20140110, end: 20140114
  5. NORCO [Concomitant]
     Indication: FIBROMYALGIA
     Route: 048
  6. OMEPRAZOLE [Concomitant]
     Indication: GASTROOESOPHAGEAL REFLUX DISEASE
     Route: 048

REACTIONS (2)
  - Fibromyalgia [Recovering/Resolving]
  - Hypotension [Recovering/Resolving]
